FAERS Safety Report 6094605-2 (Version None)
Quarter: 2009Q1

REPORT INFORMATION
  Report Type: 
  Country: None (occurrence: None)
  Receive Date: 20090226
  Receipt Date: 20090217
  Transmission Date: 20090719
  Serious: Yes (Other)
  Sender: FDA-Public Use
  Company Number: PHBS2009DE00857

PATIENT
  Age: 52 Year
  Sex: Female

DRUGS (2)
  1. IMATINIB MESYLATE [Suspect]
     Indication: CHRONIC MYELOID LEUKAEMIA
     Dosage: 400 MG/DAY
     Dates: start: 20040101
  2. IMATINIB MESYLATE [Suspect]
     Dosage: 600 MG/DAY
     Dates: start: 20060101

REACTIONS (6)
  - ACUTE MYELOID LEUKAEMIA [None]
  - BLAST CELLS PRESENT [None]
  - CYTOGENETIC ANALYSIS ABNORMAL [None]
  - GENE MUTATION IDENTIFICATION TEST POSITIVE [None]
  - LEUKAEMIA RECURRENT [None]
  - MYELODYSPLASTIC SYNDROME [None]
